FAERS Safety Report 15435945 (Version 1)
Quarter: 2018Q3

REPORT INFORMATION
  Report Type: Spontaneous
  Country: JP (occurrence: JP)
  Receive Date: 20180927
  Receipt Date: 20180927
  Transmission Date: 20181010
  Serious: Yes (Other)
  Sender: FDA-Public Use
  Company Number: JP-ASTRAZENECA-2018SF12427

PATIENT
  Age: 55 Year
  Sex: Male

DRUGS (8)
  1. FINIBAX [Suspect]
     Active Substance: DORIPENEM MONOHYDRATE
     Route: 042
     Dates: start: 20180725
  2. CANCIDAS [Suspect]
     Active Substance: CASPOFUNGIN ACETATE
     Dosage: 50.0MG UNKNOWN
     Route: 041
     Dates: start: 20180714
  3. CUBICIN [Suspect]
     Active Substance: DAPTOMYCIN
     Dosage: 420.0MG UNKNOWN
     Route: 042
     Dates: start: 20180726
  4. NEXIUM [Suspect]
     Active Substance: ESOMEPRAZOLE MAGNESIUM
     Dosage: UNKNOWN
     Route: 048
  5. ATOVAQUONE. [Suspect]
     Active Substance: ATOVAQUONE
     Dosage: 10.0ML UNKNOWN
     Route: 065
     Dates: start: 20180707
  6. TACROLIMUS HYDRATE [Suspect]
     Active Substance: TACROLIMUS
     Route: 065
     Dates: start: 20180708
  7. NEUTROGIN [Concomitant]
     Active Substance: LENOGRASTIM
  8. ACELIO [Concomitant]
     Active Substance: ACETAMINOPHEN
     Dates: start: 20180704

REACTIONS (2)
  - Hepatic function abnormal [Recovering/Resolving]
  - Renal impairment [Recovering/Resolving]

NARRATIVE: CASE EVENT DATE: 20180801
